FAERS Safety Report 20648179 (Version 1)
Quarter: 2022Q1

REPORT INFORMATION
  Report Type: Other
  Country: CN (occurrence: CN)
  Receive Date: 20220329
  Receipt Date: 20220329
  Transmission Date: 20220424
  Serious: Yes (Other)
  Sender: FDA-Public Use
  Company Number: CN-Blueprint Medicines Corporation-SO-CN-2022-000823

PATIENT
  Age: 46 Year

DRUGS (1)
  1. GAVRETO [Suspect]
     Active Substance: PRALSETINIB
     Indication: Product used for unknown indication
     Route: 048

REACTIONS (11)
  - Foreign body in throat [Unknown]
  - Increased appetite [Unknown]
  - Periorbital swelling [Unknown]
  - Vision blurred [Unknown]
  - Chest pain [Unknown]
  - Poor quality sleep [Unknown]
  - Initial insomnia [Unknown]
  - Chest discomfort [Unknown]
  - Generalised oedema [Unknown]
  - Face oedema [Unknown]
  - Constipation [Unknown]
